FAERS Safety Report 11792704 (Version 2)
Quarter: 2015Q4

REPORT INFORMATION
  Report Type: Spontaneous
  Country: IT (occurrence: IT)
  Receive Date: 20151202
  Receipt Date: 20151214
  Transmission Date: 20160305
  Serious: Yes (Other)
  Sender: FDA-Public Use
  Company Number: IT-ROCHE-1671202

PATIENT
  Age: 46 Year
  Sex: Female
  Weight: 60 kg

DRUGS (5)
  1. DECAPEPTYL [Concomitant]
     Active Substance: TRIPTORELIN ACETATE
     Dosage: 3.75 MG / 2 ML POWDER AND SOLVENT FOR PROLONGED-RELEASE SUSPENSION FOR INJECTION?1 POWDER VIAL + 1 S
     Route: 030
  2. PACLITAXEL. [Suspect]
     Active Substance: PACLITAXEL
     Indication: BREAST CANCER
     Dosage: 6 MG/ML 50 ML VIAL
     Route: 042
     Dates: start: 20150624, end: 20150729
  3. HERCEPTIN [Suspect]
     Active Substance: TRASTUZUMAB
     Indication: BREAST CANCER
     Dosage: 1 VIAL
     Route: 042
     Dates: start: 20150624, end: 20150729
  4. DEURSIL [Concomitant]
     Active Substance: URSODIOL
     Dosage: 20 HARD CAPSULES
     Route: 048
  5. HERCEPTIN [Suspect]
     Active Substance: TRASTUZUMAB
     Indication: BREAST CANCER
     Route: 058

REACTIONS (1)
  - Transaminases increased [Recovered/Resolved]

NARRATIVE: CASE EVENT DATE: 20150805
